FAERS Safety Report 13710852 (Version 14)
Quarter: 2022Q4

REPORT INFORMATION
  Report Type: Report from Study
  Country: TR (occurrence: None)
  Receive Date: 20170703
  Receipt Date: 20221118
  Transmission Date: 20230113
  Serious: Yes (Death, Life-Threatening, Hospitalization)
  Sender: FDA-Public Use
  Company Number: TR-ROCHE-1932955

PATIENT
  Age: 76 Year
  Sex: Male
  Weight: 78.3 kg

DRUGS (11)
  1. ATEZOLIZUMAB [Suspect]
     Active Substance: ATEZOLIZUMAB
     Indication: Transitional cell carcinoma metastatic
     Dosage: HE RECEIVED HIS MOST RECENT DOSE OF ATEZOLIZUMAB PRIOR TO EVENT ONSET ON 04/MAY/2017.
     Route: 042
     Dates: start: 20170504
  2. GEMCITABINE [Suspect]
     Active Substance: GEMCITABINE
     Indication: Transitional cell carcinoma metastatic
     Dosage: HE RECEIVED HIS MOST RECENT DOSE OF GEMCITABINE (1900 MG/M2) PRIOR TO EVENT ONSET ON 04/MAY/2017.?FR
     Route: 042
     Dates: start: 20170504
  3. CARBOPLATIN [Suspect]
     Active Substance: CARBOPLATIN
     Indication: Transitional cell carcinoma metastatic
     Dosage: HE RECEIVED HIS MOST RECENT DOSE OF CARBOPLATIN (397.4MG) PRIOR TO EVENT ONSET ON 04/MAY/2017.?DOSE
     Route: 042
     Dates: start: 20170504
  4. ATORVASTATIN CALCIUM [Concomitant]
     Active Substance: ATORVASTATIN CALCIUM
     Indication: Hypercholesterolaemia
     Route: 048
     Dates: end: 20170520
  5. ASPIRIN [Concomitant]
     Active Substance: ASPIRIN
     Route: 048
     Dates: end: 20170618
  6. PANTOPRAZOLE [Concomitant]
     Active Substance: PANTOPRAZOLE
     Indication: Ulcer
     Route: 048
  7. PANTOPRAZOLE [Concomitant]
     Active Substance: PANTOPRAZOLE
     Indication: Pneumonia
     Route: 042
     Dates: start: 20170507, end: 20170520
  8. SACCHAROMYCES CEREVISIAE [Concomitant]
     Active Substance: SACCHAROMYCES CEREVISIAE
     Route: 048
     Dates: end: 20170509
  9. METRONIDAZOLE [Concomitant]
     Active Substance: METRONIDAZOLE
     Route: 042
     Dates: start: 20170507, end: 20170603
  10. REPAGLINIDE [Concomitant]
     Active Substance: REPAGLINIDE
     Route: 048
     Dates: start: 20170510, end: 20170519
  11. ALBUMIN HUMAN [Concomitant]
     Active Substance: ALBUMIN HUMAN
     Route: 042
     Dates: start: 20170520, end: 20170520

REACTIONS (4)
  - Dyspnoea [Fatal]
  - Pneumonia [Recovered/Resolved]
  - Supraventricular tachycardia [Recovered/Resolved]
  - Renal impairment [Recovered/Resolved]

NARRATIVE: CASE EVENT DATE: 20170507
